FAERS Safety Report 14747427 (Version 1)
Quarter: 2018Q2

REPORT INFORMATION
  Report Type: Report from Study
  Country: US (occurrence: US)
  Receive Date: 20180411
  Receipt Date: 20180411
  Transmission Date: 20180711
  Serious: Yes (Other)
  Sender: FDA-Public Use
  Company Number: US-ROCHE-2105094

PATIENT

DRUGS (4)
  1. CAPECITABINE. [Suspect]
     Active Substance: CAPECITABINE
     Indication: GASTROINTESTINAL CARCINOMA
     Dosage: ON DAYS 1-14 EVERY 21 DAYS (1 CYCLE)
     Route: 048
  2. PANITUMUMAB [Suspect]
     Active Substance: PANITUMUMAB
     Route: 042
  3. PANITUMUMAB [Suspect]
     Active Substance: PANITUMUMAB
     Indication: GASTROINTESTINAL CARCINOMA
     Dosage: OVER 60 MINUTES ON DAY 1 OF A 14 DAY CYCLE
     Route: 042
  4. OXALIPLATIN. [Suspect]
     Active Substance: OXALIPLATIN
     Indication: GASTROINTESTINAL CARCINOMA
     Dosage: ON DAY 1
     Route: 065

REACTIONS (2)
  - Paronychia [Unknown]
  - Mucosal inflammation [Unknown]
